FAERS Safety Report 20751043 (Version 1)
Quarter: 2022Q2

REPORT INFORMATION
  Report Type: Spontaneous
  Country: US (occurrence: None)
  Receive Date: 20220426
  Receipt Date: 20220426
  Transmission Date: 20220721
  Serious: Yes (unspecified)
  Sender: FDA-Public Use
  Company Number: None

PATIENT
  Age: 24 Year
  Sex: Female

DRUGS (2)
  1. MINOCYCLINE HYDROCHLORIDE [Suspect]
     Active Substance: MINOCYCLINE HYDROCHLORIDE
     Indication: Product used for unknown indication
     Dosage: OTHER QUANTITY : 1 CAPSULE(S);?FREQUENCY : EVERY 12 HOURS;?
     Route: 048
     Dates: start: 20220422, end: 20220425
  2. WOMEN^S DAILY  MULTI VITAMINS [Concomitant]

REACTIONS (11)
  - Hallucination [None]
  - Panic attack [None]
  - Insomnia [None]
  - Middle insomnia [None]
  - Negative thoughts [None]
  - Self-injurious ideation [None]
  - Palpitations [None]
  - Headache [None]
  - Anxiety [None]
  - Dizziness [None]
  - Impaired work ability [None]

NARRATIVE: CASE EVENT DATE: 20220426
